FAERS Safety Report 18667752 (Version 1)
Quarter: 2020Q4

REPORT INFORMATION
  Report Type: Spontaneous
  Country: US (occurrence: US)
  Receive Date: 20201228
  Receipt Date: 20201228
  Transmission Date: 20210114
  Serious: No
  Sender: FDA-Public Use
  Company Number: US-SA-2020SA365805

PATIENT

DRUGS (2)
  1. DUPIXENT [Suspect]
     Active Substance: DUPILUMAB
     Indication: DERMATITIS ATOPIC
     Dosage: UNK UNK, 1X (INJECT 2 PENS UNDER THE SKIN ON DAY 1)
     Route: 058
  2. DUPIXENT [Suspect]
     Active Substance: DUPILUMAB
     Dosage: UNK UNK, QOW (INJECT 1 PEN ON DAY 15), THEN 1 PEN EVERY OTHER WEEK AFTERWARDS
     Route: 058
     Dates: start: 202012

REACTIONS (1)
  - Drug ineffective [Unknown]
